FAERS Safety Report 5688382-4 (Version None)
Quarter: 2008Q1

REPORT INFORMATION
  Report Type: 
  Country: None (occurrence: None)
  Receive Date: 20080331
  Receipt Date: 20080325
  Transmission Date: 20080703
  Serious: Yes (Death, Hospitalization)
  Sender: FDA-Public Use
  Company Number: PHBS2008PE03667

PATIENT
  Age: 64 Year
  Sex: Male

DRUGS (2)
  1. GLEEVEC [Suspect]
     Indication: CHRONIC MYELOID LEUKAEMIA
     Dosage: 400 MG, QD
     Route: 048
     Dates: start: 20071001, end: 20080101
  2. GLEEVEC [Suspect]
     Dosage: 800 MG, QD
     Route: 048
     Dates: start: 20080101

REACTIONS (7)
  - BLAST CRISIS IN MYELOGENOUS LEUKAEMIA [None]
  - LEUKOCYTOSIS [None]
  - MALIGNANT NEOPLASM PROGRESSION [None]
  - PNEUMONIA [None]
  - SYSTEMIC CANDIDA [None]
  - THROMBOCYTOPENIA [None]
  - THROMBOPHLEBITIS [None]
